FAERS Safety Report 8043357-5 (Version None)
Quarter: 2012Q1

REPORT INFORMATION
  Report Type: 
  Country: None (occurrence: None)
  Receive Date: 20120112
  Receipt Date: 20120110
  Transmission Date: 20120608
  Serious: Yes (Other)
  Sender: FDA-Public Use
  Company Number: BR-ABBOTT-11P-020-0886127-00

PATIENT
  Sex: Male
  Weight: 84 kg

DRUGS (10)
  1. LITHIUM CARBONATE [Concomitant]
     Indication: BIPOLAR DISORDER
     Route: 048
  2. METHOTREXATE [Concomitant]
     Indication: PRODUCT USED FOR UNKNOWN INDICATION
     Dates: start: 19990101, end: 20061101
  3. HUMIRA [Suspect]
     Indication: PSORIATIC ARTHROPATHY
     Route: 058
     Dates: start: 20060823
  4. BENZATHINE BENZYLPENICILLIN/ BACTERIAL ANTIGENS [Concomitant]
     Indication: BIPOLAR DISORDER
     Route: 048
  5. CARBAMAZEPINE [Concomitant]
     Indication: BIPOLAR DISORDER
     Dosage: 1 TAB AT NIGHT
     Route: 048
  6. PREDNISONE TAB [Concomitant]
     Indication: PRODUCT USED FOR UNKNOWN INDICATION
     Dosage: 5 MG DAILY
     Dates: start: 19990101
  7. LORAX [Concomitant]
     Indication: ANXIETY
     Dosage: ONLY DURING CRISIS PERIODS
  8. NON-HORMONAL ANTI-INFLAMMATORY [Concomitant]
     Indication: PRODUCT USED FOR UNKNOWN INDICATION
     Dates: start: 19990101
  9. VENLAFAXINE [Concomitant]
     Indication: BIPOLAR DISORDER
     Dosage: 1 TAB IN AM; 2 TAB Q 12 HRS IN CRISIS
     Route: 048
  10. QUETIAPINE FUMARATE [Concomitant]
     Indication: BIPOLAR DISORDER
     Dosage: 1 AT NIGHT

REACTIONS (8)
  - SKIN HAEMORRHAGE [None]
  - PAIN IN EXTREMITY [None]
  - HYPERKERATOSIS [None]
  - ARTHRALGIA [None]
  - SQUAMOUS CELL CARCINOMA [None]
  - BIPOLAR DISORDER [None]
  - INJECTION SITE PAIN [None]
  - BASAL CELL CARCINOMA [None]
